FAERS Safety Report 17782840 (Version 1)
Quarter: 2020Q2

REPORT INFORMATION
  Report Type: Spontaneous
  Country: FR (occurrence: FR)
  Receive Date: 20200513
  Receipt Date: 20200513
  Transmission Date: 20200714
  Serious: Yes (Other)
  Sender: FDA-Public Use
  Company Number: FR-FERRINGPH-2020FE03113

PATIENT
  Age: 77 Year
  Sex: Male

DRUGS (9)
  1. SERTRALINE [Concomitant]
     Active Substance: SERTRALINE HYDROCHLORIDE
     Dosage: 50 MG, 1 TIME DAILY
     Route: 048
     Dates: start: 201907
  2. FENOFIBRATE. [Concomitant]
     Active Substance: FENOFIBRATE
     Dosage: 200 MG, 1 TIME DAILY
     Route: 048
     Dates: start: 201307
  3. TIMOLOL. [Concomitant]
     Active Substance: TIMOLOL
     Dosage: 1 DF, 1 TIME DAILY
     Route: 047
     Dates: start: 201805
  4. CANDESARTAN CILEXETIL. [Concomitant]
     Active Substance: CANDESARTAN CILEXETIL
     Dosage: 8 MG, 1 TIME DAILY
     Route: 048
     Dates: start: 201812
  5. HYDROCHLOROTHIAZIDE. [Concomitant]
     Active Substance: HYDROCHLOROTHIAZIDE
     Dosage: 12.5 MG, 1 TIME DAILY
     Route: 048
     Dates: start: 201812
  6. LATANOPROST. [Concomitant]
     Active Substance: LATANOPROST
     Dosage: 1 DF, 1 TIME DAILY
     Route: 047
     Dates: start: 201805
  7. FIRMAGON [Suspect]
     Active Substance: DEGARELIX ACETATE
     Indication: PROSTATE CANCER
     Dosage: 1 DF, MONTHLY
     Route: 058
     Dates: start: 20181026
  8. KARDEGIC [Concomitant]
     Active Substance: ASPIRIN DL-LYSINE
     Dosage: 1 DF, 1 TIME DAILY
     Route: 048
     Dates: start: 201901
  9. BISOCE [Concomitant]
     Active Substance: BISOPROLOL
     Dosage: 1 DF, 1 TIME DAILY
     Route: 048
     Dates: start: 201306

REACTIONS (6)
  - Chills [Recovered/Resolved]
  - Disorientation [Recovered/Resolved]
  - Asthenia [Recovered/Resolved]
  - Erythema [Recovered/Resolved]
  - Vision blurred [Recovered/Resolved]
  - Lethargy [Recovered/Resolved]

NARRATIVE: CASE EVENT DATE: 20200328
